FAERS Safety Report 21472266 (Version 4)
Quarter: 2022Q4

REPORT INFORMATION
  Report Type: Spontaneous
  Country: PT (occurrence: PT)
  Receive Date: 20221018
  Receipt Date: 20221025
  Transmission Date: 20230113
  Serious: Yes (Hospitalization)
  Sender: FDA-Public Use
  Company Number: PT-NOVARTISPH-NVSC2022PT233160

PATIENT
  Age: 30 Year
  Sex: Male

DRUGS (1)
  1. IBUPROFEN [Suspect]
     Active Substance: IBUPROFEN
     Indication: Toothache
     Dosage: 1800 MG, QD (600 MG, TID (8/8 HOURS)
     Route: 065

REACTIONS (1)
  - Acute kidney injury [Recovered/Resolved]
